FAERS Safety Report 10917608 (Version 1)
Quarter: 2015Q1

REPORT INFORMATION
  Report Type: Spontaneous
  Country: US (occurrence: None)
  Receive Date: 20150312
  Receipt Date: 20150312
  Transmission Date: 20150721
  Serious: Yes (Hospitalization)
  Sender: FDA-Public Use
  Company Number: None

PATIENT
  Age: 63 Year
  Sex: Male
  Weight: 97.52 kg

DRUGS (9)
  1. LOZOL [Concomitant]
     Active Substance: INDAPAMIDE
  2. MULTIVITAMINS [Concomitant]
     Active Substance: VITAMINS
  3. MAGNESIUM [Concomitant]
     Active Substance: MAGNESIUM
  4. LEVOFLOXACIN. [Suspect]
     Active Substance: LEVOFLOXACIN
     Indication: ILL-DEFINED DISORDER
     Dosage: 2003-10 PILLS?2006-7 PILLS 500 MG EACH?2013-TOOK 4 OF 7
     Route: 048
     Dates: start: 2003, end: 20130305
  5. BABY ASPIRIN [Concomitant]
     Active Substance: ASPIRIN
  6. ATENOL [Concomitant]
     Active Substance: ATENOLOL
  7. TYLENOL [Concomitant]
     Active Substance: ACETAMINOPHEN
  8. BENICAR [Concomitant]
     Active Substance: OLMESARTAN MEDOXOMIL
  9. COQ10 [Concomitant]
     Active Substance: UBIDECARENONE

REACTIONS (3)
  - Cough [None]
  - Neuropathy peripheral [None]
  - Tendon disorder [None]

NARRATIVE: CASE EVENT DATE: 2003
